FAERS Safety Report 15363161 (Version 6)
Quarter: 2021Q4

REPORT INFORMATION
  Report Type: Report from Study
  Country: US (occurrence: US)
  Receive Date: 20180907
  Receipt Date: 20211029
  Transmission Date: 20220303
  Serious: Yes (Hospitalization)
  Sender: FDA-Public Use
  Company Number: US-NOVARTISTESTPH-PHHO2018US010024

PATIENT
  Age: 16 Year
  Sex: Female

DRUGS (18)
  1. RUXOLITINIB [Suspect]
     Active Substance: RUXOLITINIB
     Indication: Acute lymphocytic leukaemia
     Dosage: 90 MG, BID
     Route: 048
     Dates: start: 20170619
  2. RUXOLITINIB [Suspect]
     Active Substance: RUXOLITINIB
     Dosage: 95 MG, BID
     Route: 048
     Dates: start: 20180709, end: 20180827
  3. RUXOLITINIB [Suspect]
     Active Substance: RUXOLITINIB
     Dosage: 90 MG, BID
     Route: 048
     Dates: start: 20181015
  4. METHOTREXATE [Suspect]
     Active Substance: METHOTREXATE
     Indication: Acute lymphocytic leukaemia
     Dosage: 27.5 MG, QW
     Route: 048
     Dates: start: 20180319, end: 20180826
  5. METHOTREXATE [Suspect]
     Active Substance: METHOTREXATE
     Dosage: 27.5 MG, QW
     Route: 048
     Dates: start: 20181015
  6. MERCAPTOPURINE [Suspect]
     Active Substance: MERCAPTOPURINE
     Indication: Acute lymphocytic leukaemia
     Dosage: 50 MG, QD
     Route: 048
     Dates: start: 20180312, end: 20180826
  7. MERCAPTOPURINE [Suspect]
     Active Substance: MERCAPTOPURINE
     Dosage: 50 MG, QD
     Route: 048
     Dates: start: 20180917, end: 20181001
  8. MERCAPTOPURINE [Suspect]
     Active Substance: MERCAPTOPURINE
     Dosage: 50 MG, QD
     Route: 048
     Dates: start: 20181015
  9. PREDNISONE [Suspect]
     Active Substance: PREDNISONE
     Indication: Acute lymphocytic leukaemia
     Dosage: 38 MG, BID
     Route: 048
     Dates: start: 20170305, end: 20180810
  10. PREDNISONE [Suspect]
     Active Substance: PREDNISONE
     Dosage: 38 MG, BID
     Route: 048
     Dates: start: 20181015
  11. VINCRISTINE [Suspect]
     Active Substance: VINCRISTINE
     Indication: Acute lymphocytic leukaemia
     Dosage: NO TREATMENT
     Route: 065
  12. VINCRISTINE [Suspect]
     Active Substance: VINCRISTINE
     Dosage: 2 MG, UNK
     Route: 042
     Dates: start: 20180917
  13. VANCOMYCIN [Concomitant]
     Active Substance: VANCOMYCIN
     Indication: Product used for unknown indication
     Dosage: 750 MG
     Route: 042
     Dates: start: 20180826, end: 20180830
  14. KETOROLAC TROMETHAMINE [Concomitant]
     Active Substance: KETOROLAC TROMETHAMINE
     Indication: Product used for unknown indication
     Dosage: 15 MG, ONCE/SINGLE
     Route: 065
  15. LINEZOLID [Concomitant]
     Active Substance: LINEZOLID
     Indication: Pyrexia
     Dosage: 600 MG, BID
     Route: 042
     Dates: start: 20180902, end: 20181010
  16. LINEZOLID [Concomitant]
     Active Substance: LINEZOLID
     Indication: Infection
  17. CEFTRIAXONE SODIUM [Concomitant]
     Active Substance: CEFTRIAXONE SODIUM
     Indication: Pyrexia
     Dosage: 1 G, BID
     Route: 065
     Dates: start: 20180912, end: 20181001
  18. CEFTRIAXONE SODIUM [Concomitant]
     Active Substance: CEFTRIAXONE SODIUM
     Indication: Infection

REACTIONS (5)
  - Acute kidney injury [Recovered/Resolved]
  - Pyrexia [Recovered/Resolved]
  - Cellulitis [Recovered/Resolved]
  - Cellulitis [Recovered/Resolved]
  - Erythema nodosum [Recovered/Resolved]

NARRATIVE: CASE EVENT DATE: 20180824
